FAERS Safety Report 7795388-8 (Version None)
Quarter: 2011Q3

REPORT INFORMATION
  Report Type: 
  Country: None (occurrence: None)
  Receive Date: 20110930
  Receipt Date: 20110914
  Transmission Date: 20111222
  Serious: Yes (Hospitalization)
  Sender: FDA-Public Use
  Company Number: JPI-P-017106

PATIENT
  Age: 58 Year
  Sex: Female

DRUGS (3)
  1. XYREM [Suspect]
     Indication: FIBROMYALGIA
     Dosage: ORAL, (5.5 GM FIRST DOSE/5 GM SECOND DOSE), ORAL
     Route: 048
     Dates: start: 20060901
  2. XYREM [Suspect]
     Indication: FIBROMYALGIA
     Dosage: ORAL, (5.5 GM FIRST DOSE/5 GM SECOND DOSE), ORAL
     Route: 048
     Dates: end: 20110831
  3. MILNACIPRAN HYDROCHLORIDE [Concomitant]

REACTIONS (1)
  - MANIA [None]
